APPROVED DRUG PRODUCT: PROCALAMINE
Active Ingredient: AMINO ACIDS; CALCIUM ACETATE; GLYCERIN; MAGNESIUM ACETATE; PHOSPHORIC ACID; POTASSIUM CHLORIDE; SODIUM ACETATE; SODIUM CHLORIDE
Strength: 3%;26MG/100ML;3GM/100ML;54MG/100ML;41MG/100ML;150MG/100ML;200MG/100ML;120MG/100ML
Dosage Form/Route: INJECTABLE;INJECTION
Application: N018582 | Product #001
Applicant: B BRAUN MEDICAL INC
Approved: May 8, 1982 | RLD: No | RS: No | Type: DISCN